FAERS Safety Report 8558151-6 (Version None)
Quarter: 2012Q3

REPORT INFORMATION
  Report Type: 
  Country: None (occurrence: None)
  Receive Date: 20120801
  Receipt Date: 20120724
  Transmission Date: 20120928
  Serious: No
  Sender: FDA-Public Use
  Company Number: US-BAYER-2012-074396

PATIENT
  Sex: Female

DRUGS (1)
  1. CLIMARA PRO [Suspect]
     Indication: MENOPAUSAL SYMPTOMS
     Dosage: UNK
     Route: 061
     Dates: start: 20080101

REACTIONS (5)
  - MALAISE [None]
  - MOOD ALTERED [None]
  - DIZZINESS [None]
  - NAUSEA [None]
  - NO ADVERSE EVENT [None]
